FAERS Safety Report 16090877 (Version 7)
Quarter: 2021Q3

REPORT INFORMATION
  Report Type: Spontaneous
  Country: US (occurrence: US)
  Receive Date: 20190319
  Receipt Date: 20210806
  Transmission Date: 20211014
  Serious: Yes (Other)
  Sender: FDA-Public Use
  Company Number: US-PFIZER INC-2019061915

PATIENT
  Age: 62 Year
  Sex: Male

DRUGS (3)
  1. XELJANZ [Suspect]
     Active Substance: TOFACITINIB CITRATE
     Indication: COLITIS ULCERATIVE
     Dosage: 5 MG, UNK
  2. XELJANZ [Suspect]
     Active Substance: TOFACITINIB CITRATE
     Dosage: 5 MG, 2X/DAY
     Route: 048
     Dates: start: 2018, end: 202106
  3. XELJANZ [Suspect]
     Active Substance: TOFACITINIB CITRATE
     Dosage: 5 MG, (CUT 10 MG DOSAGE IN HALF)

REACTIONS (11)
  - Product dose omission issue [Unknown]
  - Stress [Unknown]
  - Colitis ulcerative [Unknown]
  - Coagulopathy [Unknown]
  - Transfusion related complication [Unknown]
  - Impaired work ability [Unknown]
  - Wrong technique in product usage process [Unknown]
  - Inflammation [Unknown]
  - Arthralgia [Unknown]
  - Blood cholesterol increased [Unknown]
  - Decreased immune responsiveness [Unknown]
